FAERS Safety Report 11749361 (Version 1)
Quarter: 2015Q4

REPORT INFORMATION
  Report Type: Spontaneous
  Country: GR (occurrence: GR)
  Receive Date: 20151118
  Receipt Date: 20151118
  Transmission Date: 20160304
  Serious: Yes (Other)
  Sender: FDA-Public Use
  Company Number: PHHY2015GR148878

PATIENT
  Age: 37 Week
  Sex: Female

DRUGS (1)
  1. ACZ885 [Suspect]
     Active Substance: CANAKINUMAB
     Indication: CHRONIC INFANTILE NEUROLOGICAL CUTANEOUS AND ARTICULAR SYNDROME
     Dosage: 4 MG/KG, UNK
     Route: 065

REACTIONS (2)
  - Ocular hyperaemia [Recovered/Resolved]
  - Urticaria [Recovered/Resolved]
